FAERS Safety Report 12791597 (Version 3)
Quarter: 2016Q4

REPORT INFORMATION
  Report Type: Report from Study
  Country: CA (occurrence: CA)
  Receive Date: 20160929
  Receipt Date: 20161018
  Transmission Date: 20170207
  Serious: Yes (Hospitalization, Disabling)
  Sender: FDA-Public Use
  Company Number: CA-TOLMAR, INC.-2016CA009374

PATIENT

DRUGS (16)
  1. ELIGARD [Suspect]
     Active Substance: LEUPROLIDE ACETATE
     Indication: PROSTATE CANCER
     Dosage: 30 MG, UNK
     Route: 058
     Dates: start: 20100818
  2. GABAPENTINE [Concomitant]
     Active Substance: GABAPENTIN
     Dosage: 100 MG ON MONDAY, WEDNESDAY AND FRIDAY100 MG, Q3WEEKS
     Dates: start: 20160923, end: 20160923
  3. TELMISARTAN. [Concomitant]
     Active Substance: TELMISARTAN
     Dosage: 80 MG, DAILY
     Dates: start: 20160912, end: 20160912
  4. DIMENHYDRINATE. [Concomitant]
     Active Substance: DIMENHYDRINATE
     Dosage: 50 MG, Q6HR
     Route: 048
     Dates: start: 20160928, end: 20160928
  5. DIMENHYDRINATE. [Concomitant]
     Active Substance: DIMENHYDRINATE
     Dosage: UNK, MINI BAG, PRN
     Route: 042
  6. ACETAMINOPHEN. [Concomitant]
     Active Substance: ACETAMINOPHEN
     Dosage: 500 MG, TID
     Route: 048
     Dates: start: 20160915, end: 20160915
  7. HYDROMORPHONE [Concomitant]
     Active Substance: HYDROMORPHONE
     Dosage: 2 MG, Q3HR, IF NOT GIVEN ORAL
     Route: 058
     Dates: start: 20160916, end: 20160916
  8. POLYETHYLENE GLYCOL 3350. [Concomitant]
     Active Substance: POLYETHYLENE GLYCOL 3350
     Dosage: UNK, DAILY
     Dates: start: 20160913, end: 20160913
  9. ROSUVASTATIN. [Concomitant]
     Active Substance: ROSUVASTATIN
     Dosage: 20 MG, BED TIME
     Dates: start: 20160912, end: 20160912
  10. BISOPROLOL                         /00802602/ [Concomitant]
     Active Substance: BISOPROLOL
     Dosage: 5 MG, DAILY
     Dates: start: 20160912, end: 20160912
  11. HYDROMORPHONE [Concomitant]
     Active Substance: HYDROMORPHONE
     Dosage: 2 MG, Q3HR, IF NOT GIVEN SUBCUTANEOUSLY
     Route: 048
     Dates: start: 20160916, end: 20160916
  12. HYDROCHLOROTHIAZIDE. [Suspect]
     Active Substance: HYDROCHLOROTHIAZIDE
     Dosage: 25 MG, DAILY
     Route: 048
     Dates: start: 20160912, end: 20160912
  13. HEPARINE                           /00027701/ [Concomitant]
     Active Substance: HEPARIN SODIUM
     Dosage: 500 U, BID
     Route: 058
     Dates: start: 20160914, end: 20160914
  14. NIFEDIPINE. [Concomitant]
     Active Substance: NIFEDIPINE
     Dosage: 30 MG, DAILY
     Dates: start: 20160912, end: 20160912
  15. HALOPERIDOL                        /00027402/ [Concomitant]
     Active Substance: HALOPERIDOL
     Dosage: 5 MG/ML, INJECTION SOLUTION, EACH 30 MIN
     Route: 058
     Dates: start: 20160914, end: 20160914
  16. PANTOPRAZOLE [Concomitant]
     Active Substance: PANTOPRAZOLE SODIUM
     Dosage: 40 MG, DAILY
     Route: 048
     Dates: start: 20160912, end: 20160912

REACTIONS (1)
  - Leg amputation [Unknown]

NARRATIVE: CASE EVENT DATE: 20160913
